FAERS Safety Report 6639357-X (Version None)
Quarter: 2010Q1

REPORT INFORMATION
  Report Type: 
  Country: None (occurrence: None)
  Receive Date: 20100318
  Receipt Date: 20100311
  Transmission Date: 20100710
  Serious: Yes (Hospitalization)
  Sender: FDA-Public Use
  Company Number: US-BIOGENIDEC-2009BI041817

PATIENT
  Age: 73 Year
  Sex: Female

DRUGS (20)
  1. TYSABRI [Suspect]
     Indication: MULTIPLE SCLEROSIS
     Route: 042
     Dates: start: 20090427, end: 20091028
  2. HYDROCODONE [Concomitant]
     Route: 048
  3. 4-AMINOPYRIDINE [Concomitant]
     Route: 048
  4. ACTOS [Concomitant]
     Route: 048
  5. AMLODIPINE [Concomitant]
     Route: 048
  6. DETROL LA [Concomitant]
     Route: 048
  7. DURAGESIC-100 [Concomitant]
     Route: 048
  8. GABAPENTIN [Concomitant]
     Route: 048
  9. IBUPROFEN [Concomitant]
     Route: 048
  10. LEVOTHYROXINE SODIUM [Concomitant]
     Route: 048
  11. MECLIZINE [Concomitant]
     Route: 048
  12. METOPROLOL TARTRATE [Concomitant]
     Route: 048
  13. NORVASC [Concomitant]
     Route: 048
  14. POTASSIUM [Concomitant]
     Route: 048
  15. PROMETHAZINE HCL [Concomitant]
     Route: 048
  16. SERTRALINE HYDROCHLORIDE [Concomitant]
     Route: 048
  17. TIZANIDINE HCL [Concomitant]
     Route: 048
  18. ZEGRID [Concomitant]
     Route: 048
  19. ZOLPIDEM [Concomitant]
     Route: 048
  20. ZYRTEC [Concomitant]
     Route: 048

REACTIONS (1)
  - URINARY TRACT INFECTION FUNGAL [None]
